FAERS Safety Report 11926954 (Version 1)
Quarter: 2016Q1

REPORT INFORMATION
  Report Type: Spontaneous
  Country: US (occurrence: None)
  Receive Date: 20160115
  Receipt Date: 20160115
  Transmission Date: 20160526
  Serious: Yes (Other)
  Sender: FDA-Public Use
  Company Number: None

PATIENT
  Age: 78 Year
  Sex: Female
  Weight: 53.7 kg

DRUGS (1)
  1. CIPROFLOXACIN 400 MG/200 ML Q5W CLARIS LIFESCIENCES INC. [Suspect]
     Active Substance: CIPROFLOXACIN
     Indication: URINARY TRACT INFECTION
     Route: 042
     Dates: start: 20160110, end: 20160111

REACTIONS (3)
  - Injection site erythema [None]
  - Injection site reaction [None]
  - Scratch [None]

NARRATIVE: CASE EVENT DATE: 20160111
